FAERS Safety Report 9117094 (Version 2)
Quarter: 2013Q1

REPORT INFORMATION
  Report Type: Spontaneous
  Country: US (occurrence: US)
  Receive Date: 20130225
  Receipt Date: 20130325
  Transmission Date: 20140127
  Serious: Yes (Hospitalization)
  Sender: FDA-Public Use
  Company Number: US-B.I. PHARMACEUTICALS,INC./RIDGEFIELD-2013-BI-04208BP

PATIENT
  Age: 30 Year
  Sex: Male
  Weight: 120 kg

DRUGS (1)
  1. COMBIVENT [Suspect]
     Indication: ASTHMA
     Dates: start: 201207

REACTIONS (2)
  - Dyspnoea [Not Recovered/Not Resolved]
  - Product quality issue [Not Recovered/Not Resolved]
